FAERS Safety Report 22220471 (Version 1)
Quarter: 2023Q2

REPORT INFORMATION
  Report Type: Report from Study
  Country: US (occurrence: US)
  Receive Date: 20230417
  Receipt Date: 20230417
  Transmission Date: 20230721
  Serious: Yes (Other)
  Sender: FDA-Public Use
  Company Number: US-ABBVIE-4731100

PATIENT
  Age: 75 Year
  Sex: Male

DRUGS (1)
  1. LUPRON [Suspect]
     Active Substance: LEUPROLIDE ACETATE
     Indication: Product used for unknown indication
     Route: 065
     Dates: start: 20230313

REACTIONS (2)
  - Exposure to radiation [Not Recovered/Not Resolved]
  - Radiation associated pain [Not Recovered/Not Resolved]

NARRATIVE: CASE EVENT DATE: 20230407
